FAERS Safety Report 4389602-9 (Version None)
Quarter: 2004Q3

REPORT INFORMATION
  Report Type: 
  Country: None (occurrence: None)
  Receive Date: 20040702
  Receipt Date: 20040624
  Transmission Date: 20050211
  Serious: Yes (Hospitalization)
  Sender: FDA-Public Use
  Company Number: US-MERCK-0406USA02525

PATIENT
  Age: 58 Year
  Sex: Female

DRUGS (6)
  1. EMEND [Suspect]
     Route: 048
     Dates: start: 20040513, end: 20040513
  2. EMEND [Suspect]
     Route: 048
     Dates: start: 20040514, end: 20040514
  3. CYTOXAN [Concomitant]
     Route: 065
     Dates: start: 20040513
  4. DEXAMETHASONE [Suspect]
     Route: 065
     Dates: start: 20040513
  5. ADRIAMYCIN PFS [Concomitant]
     Route: 065
     Dates: start: 20040513
  6. PALONOSETRON HYDROCHLORIDE [Concomitant]
     Route: 065
     Dates: start: 20040513

REACTIONS (1)
  - PANCREATITIS [None]
